FAERS Safety Report 16350662 (Version 1)
Quarter: 2019Q2

REPORT INFORMATION
  Report Type: Spontaneous
  Country: US (occurrence: US)
  Receive Date: 20190524
  Receipt Date: 20190524
  Transmission Date: 20190711
  Serious: Yes (Other)
  Sender: FDA-Public Use
  Company Number: US-TEVA-2019-US-1052331

PATIENT
  Age: 66 Year
  Sex: Female

DRUGS (12)
  1. TURMERIC [Concomitant]
     Active Substance: HERBALS\TURMERIC
  2. PRILOSEC [Concomitant]
     Active Substance: OMEPRAZOLE MAGNESIUM
  3. ZIAC [Concomitant]
     Active Substance: BISOPROLOL FUMARATE\HYDROCHLOROTHIAZIDE
  4. LEVOTHYROXINE. [Concomitant]
     Active Substance: LEVOTHYROXINE
  5. MAGNESIUM [Concomitant]
     Active Substance: MAGNESIUM
  6. VITAMIN D3 [Concomitant]
     Active Substance: CHOLECALCIFEROL
  7. LIPITOR [Concomitant]
     Active Substance: ATORVASTATIN CALCIUM
  8. SYNRIBO [Suspect]
     Active Substance: OMACETAXINE MEPESUCCINATE
     Indication: CHRONIC MYELOID LEUKAEMIA
     Dosage: DOSE: 3.0MG/0.86ML BID
     Dates: start: 20190508
  9. POTASSIUM [Concomitant]
     Active Substance: POTASSIUM
  10. ICAPS [Concomitant]
     Active Substance: MINERALS\VITAMINS
  11. CAL MAG ZINC [Concomitant]
  12. SYSTANE EYEDROPS [Concomitant]
     Active Substance: POLYETHYLENE GLYCOL 400\PROPYLENE GLYCOL

REACTIONS (8)
  - Diarrhoea [Unknown]
  - Chills [Unknown]
  - Headache [Unknown]
  - Injection site erythema [Unknown]
  - Bone pain [Unknown]
  - Pain [Unknown]
  - Haematochezia [Unknown]
  - Pyrexia [Unknown]
